FAERS Safety Report 7608890-6 (Version None)
Quarter: 2011Q3

REPORT INFORMATION
  Report Type: 
  Country: None (occurrence: None)
  Receive Date: 20110713
  Receipt Date: 20110713
  Transmission Date: 20111222
  Serious: Yes (Disabling)
  Sender: FDA-Public Use
  Company Number: None

PATIENT
  Age: 42 Year
  Weight: 108.8633 kg

DRUGS (1)
  1. CADUET [Suspect]
     Indication: BLOOD CHOLESTEROL INCREASED
     Dosage: 10/4 MG 1 TIME A DAY

REACTIONS (4)
  - HYPOPHAGIA [None]
  - LIVER DISORDER [None]
  - ABDOMINAL PAIN UPPER [None]
  - WEIGHT DECREASED [None]
